FAERS Safety Report 11786362 (Version 1)
Quarter: 2015Q4

REPORT INFORMATION
  Report Type: Other
  Country: EG (occurrence: EG)
  Receive Date: 20151130
  Receipt Date: 20151130
  Transmission Date: 20160305
  Serious: Yes (Hospitalization)
  Sender: FDA-Public Use
  Company Number: EG-DEP_13115_2015

PATIENT
  Age: 30 Month
  Sex: Female

DRUGS (3)
  1. SULTAMICILLIN [Suspect]
     Active Substance: SULTAMICILLIN
     Indication: UPPER RESPIRATORY TRACT INFECTION
     Dosage: DF
  2. CEFOPERAZONE [Suspect]
     Active Substance: CEFOPERAZONE
     Indication: UPPER RESPIRATORY TRACT INFECTION
     Dosage: DF
  3. DICLOFENAC SODIUM. [Suspect]
     Active Substance: DICLOFENAC SODIUM
     Indication: UPPER RESPIRATORY TRACT INFECTION
     Dosage: DF

REACTIONS (1)
  - Drug reaction with eosinophilia and systemic symptoms [Recovering/Resolving]
